FAERS Safety Report 7008443-7 (Version None)
Quarter: 2010Q3

REPORT INFORMATION
  Report Type: 
  Country: None (occurrence: None)
  Receive Date: 20100721
  Receipt Date: 20100609
  Transmission Date: 20110219
  Serious: No
  Sender: FDA-Public Use
  Company Number: LMI-2010-00525(0)

PATIENT
  Age: 52 Year
  Sex: Male
  Weight: 131.5431 kg

DRUGS (1)
  1. ABLAVAR [Suspect]
     Indication: NUCLEAR MAGNETIC RESONANCE IMAGING
     Dosage: 15 ML OF ABLAVAR VIA INTRAVENOUS POWER INJECTOR (15 ML), INTRAVENOUS
     Route: 042
     Dates: start: 20100609, end: 20100609

REACTIONS (3)
  - HEADACHE [None]
  - PRURITUS [None]
  - URTICARIA [None]
